FAERS Safety Report 9238334 (Version 1)
Quarter: 2013Q2

REPORT INFORMATION
  Report Type: Spontaneous
  Country: IT (occurrence: None)
  Receive Date: 20130416
  Receipt Date: 20130416
  Transmission Date: 20140414
  Serious: Yes (Hospitalization)
  Sender: FDA-Public Use
  Company Number: 1670987

PATIENT
  Age: 59 Year
  Sex: Female

DRUGS (2)
  1. GEMCITABINE HYDROCHLORIDE [Suspect]
     Indication: OROPHARYNGEAL CANCER
     Dosage: 1250 MG/M 2 MILLIGRAM(S)/SQ. METER (CYCLICAL)
     Route: 042
     Dates: start: 20121102, end: 20121109
  2. VINORELBINA [Suspect]
     Indication: PRODUCT USED FOR UNKNOWN INDICATION
     Dosage: 25 MG/M 2 MILLIGRAM (S)/SQ. METER (CYCLICAL)
     Route: 042
     Dates: start: 20121102, end: 20121109

REACTIONS (6)
  - Pneumonia [None]
  - Sepsis [None]
  - Febrile neutropenia [None]
  - Haemoglobin increased [None]
  - Platelet count decreased [None]
  - Haematotoxicity [None]
